FAERS Safety Report 5240428-3 (Version None)
Quarter: 2007Q1

REPORT INFORMATION
  Report Type: 
  Country: None (occurrence: None)
  Receive Date: 20070219
  Receipt Date: 20070206
  Transmission Date: 20070707
  Serious: Yes (Other)
  Sender: FDA-Public Use
  Company Number: PHBS2007BR02546

PATIENT
  Age: 92 Year
  Sex: Female

DRUGS (4)
  1. CAPOTEN [Suspect]
     Indication: HYPERTENSION
  2. HIGROTON [Concomitant]
     Indication: HYPERTENSION
     Dosage: 12.5 MG, QD
     Route: 048
  3. ALDOMET [Concomitant]
     Route: 048
  4. SLOW-K [Suspect]
     Indication: BLOOD POTASSIUM DECREASED
     Dosage: 600 MG, QD
     Route: 048

REACTIONS (4)
  - BLOOD PRESSURE INCREASED [None]
  - FEELING ABNORMAL [None]
  - HYPOAESTHESIA [None]
  - MUSCLE TWITCHING [None]
